FAERS Safety Report 19742531 (Version 1)
Quarter: 2021Q3

REPORT INFORMATION
  Report Type: Spontaneous
  Country: US (occurrence: US)
  Receive Date: 20210824
  Receipt Date: 20210824
  Transmission Date: 20211014
  Serious: Yes (Hospitalization)
  Sender: FDA-Public Use
  Company Number: US-BRISTOL-MYERS SQUIBB COMPANY-BMS-2021-084271

PATIENT
  Age: 43 Year
  Sex: Male

DRUGS (3)
  1. LIDOCAINE. [Concomitant]
     Active Substance: LIDOCAINE
     Indication: ARTHRALGIA
     Dosage: 7 CC
     Route: 065
     Dates: start: 20120504
  2. KENALOG [Suspect]
     Active Substance: TRIAMCINOLONE ACETONIDE
     Indication: ARTHRALGIA
     Dosage: 2 CC 40 MG PER CC
     Route: 065
     Dates: start: 20120504
  3. DEXAMETHASONE. [Concomitant]
     Active Substance: DEXAMETHASONE
     Indication: ARTHRALGIA
     Dosage: 0.4 CC
     Route: 065
     Dates: start: 20120504

REACTIONS (1)
  - Pain [Unknown]

NARRATIVE: CASE EVENT DATE: 20120507
